FAERS Safety Report 7475176-2 (Version None)
Quarter: 2011Q2

REPORT INFORMATION
  Report Type: 
  Country: None (occurrence: None)
  Receive Date: 20110512
  Receipt Date: 20110503
  Transmission Date: 20111010
  Serious: Yes (Hospitalization, Other)
  Sender: FDA-Public Use
  Company Number: IT-BRISTOL-MYERS SQUIBB COMPANY-15717770

PATIENT
  Age: 89 Year
  Sex: Female

DRUGS (4)
  1. LANOXIN [Concomitant]
     Dosage: 1DF:0.125 MG TABS
     Route: 048
  2. PANTOPRAZOLE [Concomitant]
     Dosage: 20MG TABS
  3. DILTIAZEM HCL [Concomitant]
     Dosage: 60 MG
  4. GLUCOPHAGE [Suspect]
     Indication: TYPE 2 DIABETES MELLITUS
     Dosage: 850 MG
     Route: 048
     Dates: start: 20110301, end: 20110401

REACTIONS (2)
  - RENAL FAILURE CHRONIC [None]
  - DIABETES MELLITUS [None]
